FAERS Safety Report 24977735 (Version 2)
Quarter: 2025Q1

REPORT INFORMATION
  Report Type: Report from Study
  Country: AR (occurrence: AR)
  Receive Date: 20250217
  Receipt Date: 20250228
  Transmission Date: 20250408
  Serious: Yes (Death, Hospitalization)
  Sender: TEVA
  Company Number: AR-TEVA-VS-3299158

PATIENT
  Age: 63 Year
  Sex: Male

DRUGS (3)
  1. BORTEZOMIB [Suspect]
     Active Substance: BORTEZOMIB
     Indication: Thrombotic thrombocytopenic purpura
     Route: 065
  2. METHYLPREDNISOLONE [Suspect]
     Active Substance: METHYLPREDNISOLONE
     Indication: Thrombotic thrombocytopenic purpura
     Route: 065
  3. RITUXIMAB [Suspect]
     Active Substance: RITUXIMAB
     Indication: Thrombotic thrombocytopenic purpura
     Route: 065

REACTIONS (1)
  - Drug ineffective [Fatal]
